FAERS Safety Report 6011970-2 (Version None)
Quarter: 2008Q4

REPORT INFORMATION
  Report Type: 
  Country: None (occurrence: None)
  Receive Date: 20081218
  Receipt Date: 20081015
  Transmission Date: 20090506
  Serious: No
  Sender: FDA-Public Use
  Company Number: US-ASTRAZENECA-2008UW22889

PATIENT
  Age: 24989 Day
  Sex: Female
  Weight: 88.5 kg

DRUGS (6)
  1. CRESTOR [Suspect]
     Indication: BLOOD CHOLESTEROL INCREASED
     Route: 048
     Dates: start: 20080924, end: 20080926
  2. CRESTOR [Suspect]
     Route: 048
     Dates: start: 20080927
  3. CRESTOR [Suspect]
     Route: 048
  4. DIOVAN HCT [Concomitant]
  5. PLAVIX [Concomitant]
  6. ASPIRIN [Concomitant]

REACTIONS (3)
  - DECREASED APPETITE [None]
  - MUSCLE SPASMS [None]
  - THERAPEUTIC RESPONSE UNEXPECTED [None]
